FAERS Safety Report 9477170 (Version 1)
Quarter: 2013Q3

REPORT INFORMATION
  Report Type: Not Available
  Country: US (occurrence: US)
  Receive Date: 20130826
  Receipt Date: 20130826
  Transmission Date: 20140515
  Serious: No
  Sender: FDA-Public Use
  Company Number: US-AMARIN PHARMA, INC.-2013AMR000024

PATIENT
  Sex: Male
  Weight: 96.25 kg

DRUGS (14)
  1. VASCEPA [Suspect]
     Indication: BLOOD TRIGLYCERIDES INCREASED
     Route: 048
     Dates: start: 201304
  2. CRESTOR [Concomitant]
     Indication: BLOOD CHOLESTEROL
     Route: 048
  3. SYNTHROID [Concomitant]
     Indication: PRODUCT USED FOR UNKNOWN INDICATION
     Route: 048
  4. HCTZ [Concomitant]
     Indication: PRODUCT USED FOR UNKNOWN INDICATION
     Route: 048
  5. LOSARTAN [Concomitant]
     Indication: PRODUCT USED FOR UNKNOWN INDICATION
     Route: 048
  6. ECOTRIN [Concomitant]
     Indication: PRODUCT USED FOR UNKNOWN INDICATION
     Route: 048
  7. MEN^S ADVANTAGE [Concomitant]
     Indication: PRODUCT USED FOR UNKNOWN INDICATION
     Route: 065
  8. VITAMIN B12 [Concomitant]
     Indication: PRODUCT USED FOR UNKNOWN INDICATION
     Route: 065
  9. VITAMIN D [Concomitant]
     Indication: PRODUCT USED FOR UNKNOWN INDICATION
     Dosage: 1000 UNITS
     Route: 048
  10. NOVOLOG INSULIN [Concomitant]
     Indication: PRODUCT USED FOR UNKNOWN INDICATION
     Dosage: 28 UNITS
     Route: 065
  11. NOVOLOG INSULIN [Concomitant]
     Dosage: 38 UNITS
     Route: 065
  12. NOVOLOG INSULIN [Concomitant]
     Dosage: VARYING SLIDING SCALE
     Route: 065
  13. NOVOLOG INSULIN [Concomitant]
     Dosage: 5 UNITS
     Route: 065
  14. LANTUS INSULIN [Concomitant]
     Indication: PRODUCT USED FOR UNKNOWN INDICATION
     Dosage: 80 UNITS
     Route: 065

REACTIONS (2)
  - Blood glucose increased [None]
  - Intentional drug misuse [Unknown]
